FAERS Safety Report 6687859-2 (Version None)
Quarter: 2010Q2

REPORT INFORMATION
  Report Type: 
  Country: None (occurrence: None)
  Receive Date: 20100409
  Receipt Date: 20100409
  Transmission Date: 20101027
  Serious: Yes (Hospitalization)
  Sender: FDA-Public Use
  Company Number: 2009-154

PATIENT
  Age: 64 Year
  Sex: Female
  Weight: 74.8 kg

DRUGS (13)
  1. FAZACLO ODT [Suspect]
     Indication: BIPOLAR DISORDER
     Dosage: 200MG DAILY PO
     Route: 048
     Dates: start: 20090505, end: 20091015
  2. FAZACLO ODT [Suspect]
     Indication: SCHIZOAFFECTIVE DISORDER
     Dosage: 200MG DAILY PO
     Route: 048
     Dates: start: 20090505, end: 20091015
  3. LASIX [Concomitant]
  4. DEPAKOTE ER [Concomitant]
  5. NAMENDA [Concomitant]
  6. COREG [Concomitant]
  7. LEVOTHYROXINE SODIUM [Concomitant]
  8. COLACE [Concomitant]
  9. LOTENSIN [Concomitant]
  10. PRISTIA [Concomitant]
  11. CALCIUM CARBONATE WITH VITAMIN D [Concomitant]
  12. ZYPREXA [Concomitant]
  13. SEROQUEL [Concomitant]

REACTIONS (3)
  - AGRANULOCYTOSIS [None]
  - LETHARGY [None]
  - MENTAL STATUS CHANGES [None]
